FAERS Safety Report 14489142 (Version 1)
Quarter: 2018Q1

REPORT INFORMATION
  Report Type: Spontaneous
  Country: US (occurrence: US)
  Receive Date: 20180205
  Receipt Date: 20180205
  Transmission Date: 20180509
  Serious: No
  Sender: FDA-Public Use
  Company Number: US-AMGEN-USASP2017023141

PATIENT
  Age: 66 Year
  Sex: Male

DRUGS (5)
  1. 5 FU [Concomitant]
     Active Substance: FLUOROURACIL
     Indication: SMALL INTESTINE CARCINOMA
     Dosage: UNK UNK, Q4WK
  2. NEULASTA [Suspect]
     Active Substance: PEGFILGRASTIM
     Indication: PRODUCT USED FOR UNKNOWN INDICATION
     Dosage: UNK
     Route: 065
  3. IRINOTECAN [Concomitant]
     Active Substance: IRINOTECAN
     Indication: SMALL INTESTINE CARCINOMA
     Dosage: UNK UNK, Q4WK
  4. FOLINIC ACID [Concomitant]
     Active Substance: LEUCOVORIN
     Indication: SMALL INTESTINE CARCINOMA
     Dosage: UNK, Q4WK
  5. AVASTIN [Concomitant]
     Active Substance: BEVACIZUMAB
     Indication: SMALL INTESTINE CARCINOMA
     Dosage: UNK, Q4WK (ON DAY 1 AND INFUSED OVER 46 HOURS OF A 28 DAY CYCLE)

REACTIONS (1)
  - Application site pain [Unknown]
